FAERS Safety Report 5896194-1 (Version None)
Quarter: 2008Q3

REPORT INFORMATION
  Report Type: 
  Country: None (occurrence: None)
  Receive Date: 20080924
  Receipt Date: 20071214
  Transmission Date: 20090109
  Serious: Yes (Other)
  Sender: FDA-Public Use
  Company Number: US-ASTRAZENECA-2007UW09276

PATIENT
  Age: 45 Year
  Sex: Male
  Weight: 99.8 kg

DRUGS (35)
  1. SEROQUEL [Suspect]
     Indication: SCHIZOPHRENIA, PARANOID TYPE
     Route: 048
     Dates: start: 20000101, end: 20070101
  2. GEODON [Concomitant]
  3. NAVANE [Concomitant]
  4. RISPERDAL [Concomitant]
  5. ZYPREXA [Concomitant]
     Dates: start: 20030101
  6. SERTRALINE [Concomitant]
  7. BUSPIRONE HCL [Concomitant]
  8. VITAMIN E [Concomitant]
  9. ASPIRIN [Concomitant]
  10. HYDROCHLOROTHIAZIDE [Concomitant]
  11. ATORVASTATIN CALCIUM [Concomitant]
  12. ENALAPRIL MALEATE [Concomitant]
  13. METOPROLOL SUCCINATE [Concomitant]
  14. SALSALATE [Concomitant]
  15. MINERAL OIL [Concomitant]
  16. PETROLATUM [Concomitant]
  17. TOLNAFTATE [Concomitant]
  18. ACETAMINOPHEN AND CODEINE PHOSPHATE [Concomitant]
  19. NAPROXEN [Concomitant]
  20. FLUTICASONE PROPIONATE [Concomitant]
  21. VENLAFAXINE HCL [Concomitant]
  22. GEMFIBROZIL [Concomitant]
  23. DOCUSATE SODIUM [Concomitant]
  24. GABAPENTIN [Concomitant]
  25. AUGMENTIN '125' [Concomitant]
  26. ATENOLOL [Concomitant]
  27. LIPITOR [Concomitant]
  28. KLONOPIN [Concomitant]
  29. DIPHENHYDRAMINE HCL [Concomitant]
  30. SINEQUAN [Concomitant]
  31. DROPERIDOL [Concomitant]
  32. NITROGLYCERIN [Concomitant]
  33. TRILEPTAL [Concomitant]
  34. BACTRIM [Concomitant]
  35. SUMYCIN [Concomitant]

REACTIONS (2)
  - DIABETES MELLITUS [None]
  - TARDIVE DYSKINESIA [None]
